FAERS Safety Report 7360100-3 (Version None)
Quarter: 2011Q1

REPORT INFORMATION
  Report Type: 
  Country: None (occurrence: None)
  Receive Date: 20110318
  Receipt Date: 20110311
  Transmission Date: 20110831
  Serious: No
  Sender: FDA-Public Use
  Company Number: US-BIOGENIDEC-2011BI007039

PATIENT
  Age: 42 Year
  Sex: Female

DRUGS (3)
  1. TEGRETOL [Concomitant]
     Indication: CONVULSION
     Dates: start: 19980101
  2. TYSABRI [Suspect]
     Route: 042
     Dates: start: 20100218
  3. TYSABRI [Suspect]
     Indication: MULTIPLE SCLEROSIS
     Route: 042
     Dates: start: 20061221, end: 20090713

REACTIONS (4)
  - GAIT DISTURBANCE [None]
  - RASH PAPULAR [None]
  - FALL [None]
  - LOSS OF CONTROL OF LEGS [None]
